FAERS Safety Report 14116645 (Version 2)
Quarter: 2017Q4

REPORT INFORMATION
  Report Type: Report from Study
  Country: JP (occurrence: JP)
  Receive Date: 20171023
  Receipt Date: 20171120
  Transmission Date: 20180321
  Serious: Yes (Death, Life-Threatening)
  Sender: FDA-Public Use
  Company Number: JP-BAUSCH-BL-2017-022812

PATIENT
  Age: 90 Year
  Sex: Male

DRUGS (3)
  1. AMINOLEBAN [Concomitant]
     Active Substance: AMINO ACIDS
     Indication: HYPERAMMONAEMIA
     Route: 042
     Dates: start: 20170603, end: 20170615
  2. RIFXIMA TABLETS 200 MG [Suspect]
     Active Substance: RIFAXIMIN
     Indication: HYPERAMMONAEMIA
     Route: 048
     Dates: start: 20170612
  3. SOLDEM 3A [Concomitant]
     Active Substance: CARBOHYDRATES\POTASSIUM CHLORIDE\SODIUM CHLORIDE\SODIUM LACTATE
     Indication: FEEDING DISORDER
     Route: 042
     Dates: start: 20170527, end: 20170629

REACTIONS (2)
  - Disease progression [Fatal]
  - Blood albumin decreased [Not Recovered/Not Resolved]

NARRATIVE: CASE EVENT DATE: 20170626
